FAERS Safety Report 7760712-9 (Version None)
Quarter: 2011Q3

REPORT INFORMATION
  Report Type: 
  Country: None (occurrence: None)
  Receive Date: 20110919
  Receipt Date: 20110906
  Transmission Date: 20111222
  Serious: Yes (Hospitalization, Other)
  Sender: FDA-Public Use
  Company Number: JP-ASTRAZENECA-2011SE52702

PATIENT
  Age: 80 Year
  Sex: Male

DRUGS (6)
  1. DEPAKENE [Concomitant]
     Dosage: DOSE UNKNOWN
     Route: 048
  2. LANSOPRAZOLE [Concomitant]
     Route: 065
  3. ESOMEPRAZOLE MAGNESIUM [Suspect]
     Route: 048
     Dates: start: 20100806, end: 20110810
  4. ASPIRIN [Suspect]
     Dosage: DOSE UNKNOWN
     Route: 048
  5. GEFANIL [Suspect]
     Route: 048
     Dates: start: 20100806, end: 20110810
  6. LASIX [Concomitant]
     Dosage: DOSE UNKNOWN
     Route: 065

REACTIONS (2)
  - LYMPHOPENIA [None]
  - LUNG NEOPLASM MALIGNANT [None]
